FAERS Safety Report 7573888-3 (Version None)
Quarter: 2011Q2

REPORT INFORMATION
  Report Type: 
  Country: None (occurrence: None)
  Receive Date: 20110627
  Receipt Date: 20110607
  Transmission Date: 20111010
  Serious: Yes (Hospitalization, Congenital Anomaly)
  Sender: FDA-Public Use
  Company Number: A0932970A

PATIENT
  Sex: Female

DRUGS (1)
  1. PAXIL [Suspect]
     Indication: PRODUCT USED FOR UNKNOWN INDICATION
     Route: 064

REACTIONS (18)
  - ATRIOVENTRICULAR BLOCK COMPLETE [None]
  - VESICOURETERIC REFLUX [None]
  - PHARYNGITIS STREPTOCOCCAL [None]
  - MITRAL VALVE INCOMPETENCE [None]
  - ANOMALOUS PULMONARY VENOUS CONNECTION [None]
  - BRADYCARDIA [None]
  - PYLORIC STENOSIS [None]
  - DRUG EXPOSURE DURING PREGNANCY [None]
  - MATERNAL DRUGS AFFECTING FOETUS [None]
  - CARDIAC PROCEDURE COMPLICATION [None]
  - RENAL DYSPLASIA [None]
  - URINARY TRACT INFECTION [None]
  - SCIMITAR SYNDROME [None]
  - DIARRHOEA [None]
  - PERICARDIAL EFFUSION [None]
  - EPILEPSY [None]
  - SYNCOPE [None]
  - VOMITING [None]
